FAERS Safety Report 11583345 (Version 1)
Quarter: 2015Q3

REPORT INFORMATION
  Report Type: Spontaneous
  Country: US (occurrence: None)
  Receive Date: 20150930
  Receipt Date: 20150930
  Transmission Date: 20151125
  Serious: No
  Sender: FDA-Public Use
  Company Number: None

PATIENT
  Age: 22 Year
  Sex: Female
  Weight: 65.77 kg

DRUGS (6)
  1. COPAXONE [Suspect]
     Active Substance: GLATIRAMER ACETATE
     Indication: MULTIPLE SCLEROSIS
  2. ADDERALL [Concomitant]
     Active Substance: AMPHETAMINE ASPARTATE\AMPHETAMINE SULFATE\DEXTROAMPHETAMINE SACCHARATE\DEXTROAMPHETAMINE SULFATE
  3. WELLBUTRIN [Concomitant]
     Active Substance: BUPROPION HYDROCHLORIDE
  4. PRENATAL VITAMINS [Concomitant]
     Active Substance: VITAMINS
  5. METHADONE [Concomitant]
     Active Substance: METHADONE HYDROCHLORIDE
  6. HYDROXYZINE [Concomitant]
     Active Substance: HYDROXYZINE\HYDROXYZINE HYDROCHLORIDE

REACTIONS (8)
  - Malaise [None]
  - Anxiety [None]
  - Oropharyngeal pain [None]
  - Feeling cold [None]
  - Muscle contractions involuntary [None]
  - Muscle spasms [None]
  - Tremor [None]
  - Chills [None]
